FAERS Safety Report 9619416 (Version 1)
Quarter: 2013Q4

REPORT INFORMATION
  Report Type: Spontaneous
  Country: US (occurrence: US)
  Receive Date: 20131014
  Receipt Date: 20131014
  Transmission Date: 20140711
  Serious: Yes (Death)
  Sender: FDA-Public Use
  Company Number: PHEH2013US021179

PATIENT
  Sex: Female

DRUGS (1)
  1. TOBI [Suspect]
     Dosage: UNK

REACTIONS (1)
  - Death [Fatal]
